FAERS Safety Report 7296793-9 (Version None)
Quarter: 2011Q1

REPORT INFORMATION
  Report Type: 
  Country: None (occurrence: None)
  Receive Date: 20110216
  Receipt Date: 20110211
  Transmission Date: 20110831
  Serious: Yes (Death, Other)
  Sender: FDA-Public Use
  Company Number: B0699715A

PATIENT
  Sex: Male

DRUGS (29)
  1. NEUPOGEN [Concomitant]
     Indication: PANCYTOPENIA
     Route: 042
     Dates: start: 20070801
  2. WHOLE BLOOD [Concomitant]
     Route: 042
     Dates: start: 20100106, end: 20100106
  3. WHOLE BLOOD [Concomitant]
     Route: 042
     Dates: start: 20100121, end: 20100121
  4. EPOETIN BETA [Concomitant]
     Dates: start: 20080326, end: 20100319
  5. PLACEBO [Suspect]
  6. RECORMON [Concomitant]
  7. WHOLE BLOOD [Concomitant]
     Route: 042
     Dates: start: 20090331, end: 20090331
  8. WHOLE BLOOD [Concomitant]
     Route: 042
     Dates: start: 20091224, end: 20091224
  9. WHOLE BLOOD [Concomitant]
     Route: 042
     Dates: start: 20100218, end: 20100218
  10. SIMVASTATIN [Concomitant]
  11. NEUPOGEN [Concomitant]
     Indication: NEUTROPENIA
     Dates: start: 20080117, end: 20090217
  12. LENALIDOMIDE [Suspect]
     Dosage: 10MG PER DAY
     Route: 048
     Dates: start: 20071227, end: 20080623
  13. PREDNISONE [Suspect]
     Dates: start: 20071227
  14. WHOLE BLOOD [Concomitant]
     Route: 042
     Dates: start: 20100301, end: 20100301
  15. MELPHALAN [Suspect]
     Dates: start: 20071227
  16. GASTRO [Concomitant]
  17. FUROSEMIDE [Concomitant]
  18. METOLAZONE [Concomitant]
  19. WHOLE BLOOD [Concomitant]
     Route: 042
     Dates: start: 20091206, end: 20091207
  20. WHOLE BLOOD [Concomitant]
     Route: 042
     Dates: start: 20100126, end: 20100126
  21. WHOLE BLOOD [Concomitant]
     Route: 042
     Dates: start: 20100223, end: 20100223
  22. LOSARTAN POTASSIUM [Concomitant]
  23. DOPAMINE [Concomitant]
     Dates: start: 20100301
  24. WHOLE BLOOD [Concomitant]
     Route: 042
     Dates: start: 20100214, end: 20100214
  25. WHOLE BLOOD [Concomitant]
     Route: 042
     Dates: start: 20100304, end: 20100304
  26. WHOLE BLOOD [Concomitant]
     Indication: PANCYTOPENIA
     Route: 042
     Dates: start: 20090128, end: 20090331
  27. OXYGEN [Concomitant]
  28. WHOLE BLOOD [Concomitant]
     Route: 042
     Dates: start: 20100207, end: 20100207
  29. SPIRONOLACTONE [Concomitant]

REACTIONS (2)
  - ACUTE MYELOID LEUKAEMIA [None]
  - MYOCARDIAL ISCHAEMIA [None]
